FAERS Safety Report 6159323-0 (Version None)
Quarter: 2009Q2

REPORT INFORMATION
  Report Type: 
  Country: None (occurrence: None)
  Receive Date: 20090417
  Receipt Date: 20090414
  Transmission Date: 20091009
  Serious: Yes (Death)
  Sender: FDA-Public Use
  Company Number: NO-SANOFI-SYNTHELABO-A01200904035

PATIENT
  Sex: Male
  Weight: 70 kg

DRUGS (10)
  1. BICALUTAMIDE [Concomitant]
     Indication: PROSTATE CANCER
     Route: 048
  2. BENZATHINE PENICILLIN G [Concomitant]
     Indication: PNEUMONIA
     Dosage: UNK
     Route: 042
     Dates: start: 20090301, end: 20090309
  3. KALEORID [Concomitant]
     Indication: HYPOKALAEMIA
     Route: 048
     Dates: start: 20090316
  4. MYCOSTATIN [Concomitant]
     Indication: ORAL CANDIDIASIS
     Route: 048
     Dates: start: 20090311
  5. THEO-DUR [Concomitant]
     Indication: CHRONIC OBSTRUCTIVE PULMONARY DISEASE
     Route: 048
  6. SERETIDE [Concomitant]
     Indication: DRUG USE FOR UNKNOWN INDICATION
     Dosage: UNK
     Route: 055
  7. PHENOXYMETHYLPENICILLIN [Concomitant]
     Indication: PNEUMONIA
     Dosage: UNK
     Route: 048
     Dates: start: 20090309, end: 20090316
  8. ALBYL-E [Suspect]
     Indication: ACUTE MYOCARDIAL INFARCTION
     Route: 048
     Dates: start: 20090306
  9. FRAGMIN [Suspect]
     Indication: THROMBOSIS PROPHYLAXIS
     Route: 058
     Dates: start: 20090309
  10. PLAVIX [Suspect]
     Indication: ACUTE MYOCARDIAL INFARCTION
     Route: 048
     Dates: start: 20090306

REACTIONS (4)
  - HAEMATEMESIS [None]
  - HAEMORRHAGIC ANAEMIA [None]
  - MELAENA [None]
  - PNEUMONIA ASPIRATION [None]
